FAERS Safety Report 8436321-5 (Version None)
Quarter: 2012Q2

REPORT INFORMATION
  Report Type: 
  Country: None (occurrence: None)
  Receive Date: 20120614
  Receipt Date: 20120607
  Transmission Date: 20120825
  Serious: Yes (Life-Threatening, Other)
  Sender: FDA-Public Use
  Company Number: JP-ROCHE-765098

PATIENT
  Sex: Female

DRUGS (19)
  1. ACTEMRA [Suspect]
     Route: 041
     Dates: start: 20090218, end: 20090218
  2. ACTEMRA [Suspect]
     Route: 041
     Dates: start: 20090520, end: 20090520
  3. MICARDIS [Concomitant]
     Indication: HYPERTENSION
     Route: 048
  4. PREDNISOLONE [Concomitant]
     Indication: RHEUMATOID ARTHRITIS
     Route: 048
  5. ACTEMRA [Suspect]
     Route: 041
     Dates: start: 20091118, end: 20091118
  6. ACTEMRA [Suspect]
     Indication: RHEUMATOID ARTHRITIS
     Route: 041
     Dates: start: 20081217, end: 20081217
  7. ACTEMRA [Suspect]
     Route: 041
     Dates: start: 20091021, end: 20091021
  8. VOLTAREN [Concomitant]
     Indication: RHEUMATOID ARTHRITIS
     Route: 054
  9. VOLTAREN [Concomitant]
     Route: 054
  10. NORVASC [Concomitant]
     Dosage: PERORAL AGENT
     Route: 048
  11. ACTEMRA [Suspect]
     Route: 041
     Dates: start: 20090617, end: 20090617
  12. ACTEMRA [Suspect]
     Route: 041
     Dates: start: 20091216, end: 20091216
  13. NORVASC [Concomitant]
     Indication: HYPERTENSION
     Dosage: FORM: PERORAL AGENT
     Route: 048
  14. ALLEGRA [Concomitant]
     Indication: PRURITUS
     Dosage: PERORAL AGENT
     Route: 048
  15. ACTEMRA [Suspect]
     Route: 041
     Dates: start: 20090114, end: 20090114
  16. ACTEMRA [Suspect]
     Route: 041
     Dates: start: 20090318, end: 20090318
  17. ACTEMRA [Suspect]
     Route: 041
     Dates: start: 20090924, end: 20090924
  18. HYALEIN [Concomitant]
     Indication: DRY EYE
     Dosage: EYE DROP. UNCERTAIN DOSAGE AND SINGLE USE
     Route: 047
  19. OMEPRAZOLE [Concomitant]
     Dosage: PERORAL AGENT
     Route: 048

REACTIONS (4)
  - DISSEMINATED INTRAVASCULAR COAGULATION [None]
  - ANKLE ARTHROPLASTY [None]
  - PANCREATITIS ACUTE [None]
  - SUBCUTANEOUS ABSCESS [None]
